FAERS Safety Report 17840021 (Version 1)
Quarter: 2020Q2

REPORT INFORMATION
  Report Type: Spontaneous
  Country: US (occurrence: US)
  Receive Date: 20200529
  Receipt Date: 20200529
  Transmission Date: 20200714
  Serious: No
  Sender: FDA-Public Use
  Company Number: None

PATIENT
  Age: 86 Year
  Sex: Female
  Weight: 54.9 kg

DRUGS (10)
  1. SOTALOL. [Concomitant]
     Active Substance: SOTALOL
  2. TRIAMCINOLONE [Concomitant]
     Active Substance: TRIAMCINOLONE
  3. ALBUTEROL. [Concomitant]
     Active Substance: ALBUTEROL
  4. TYLENOL [Concomitant]
     Active Substance: ACETAMINOPHEN
  5. ZOLINZA [Suspect]
     Active Substance: VORINOSTAT
     Indication: CUTANEOUS T-CELL LYMPHOMA
     Route: 048
     Dates: start: 20200331, end: 20200529
  6. LASIX [Concomitant]
     Active Substance: FUROSEMIDE
  7. ELIQUIS [Concomitant]
     Active Substance: APIXABAN
  8. PROBIOTIC [Concomitant]
     Active Substance: PROBIOTICS NOS
  9. EYE DROPS [Concomitant]
     Active Substance: UNSPECIFIED INGREDIENT
  10. OMEPRAZOLE. [Concomitant]
     Active Substance: OMEPRAZOLE

REACTIONS (1)
  - Diarrhoea [None]

NARRATIVE: CASE EVENT DATE: 20200529
